FAERS Safety Report 8429084-0 (Version None)
Quarter: 2012Q2

REPORT INFORMATION
  Report Type: 
  Country: None (occurrence: None)
  Receive Date: 20120605
  Receipt Date: 20120524
  Transmission Date: 20120825
  Serious: Yes (Hospitalization, Disabling, Other)
  Sender: FDA-Public Use
  Company Number: 2011MA004504

PATIENT
  Sex: Male
  Weight: 81.6475 kg

DRUGS (60)
  1. CARBIDOPA [Concomitant]
  2. LEVODOPA [Concomitant]
  3. GLIMEPIRIDE [Concomitant]
  4. ISOSORBIDE MONONITRATE [Concomitant]
  5. LOVENOX [Concomitant]
  6. MICRONASE [Concomitant]
  7. CARDIZEM [Concomitant]
  8. ALTACE [Concomitant]
  9. TOPROL-XL [Concomitant]
  10. VIOXX [Concomitant]
  11. AMLODIPINE [Concomitant]
  12. LEVEMIR [Concomitant]
  13. DEPO-MEDROL [Concomitant]
  14. XYLOCAINE [Concomitant]
  15. HYALURONIC ACID [Concomitant]
  16. LEVAQUIN [Concomitant]
  17. VITAMIN D [Concomitant]
  18. PRILOSEC [Concomitant]
  19. FLAGYL [Concomitant]
  20. CYMBALTA [Concomitant]
  21. METFORMIN HCL [Concomitant]
  22. EFFEXOR [Concomitant]
  23. PREVACID [Concomitant]
  24. SINEMET [Concomitant]
  25. ACETAMINOPHEN [Concomitant]
  26. ACIPHEX [Concomitant]
  27. OMEPRAZOLE [Concomitant]
  28. SULFAMETHOXAZOLE AND TRIMETHOPRIM [Concomitant]
  29. AMARYL [Concomitant]
  30. COLACE [Concomitant]
  31. FEXOFENADINE [Concomitant]
  32. METOPROLOL SUCCINATE [Concomitant]
  33. PAROXETINE [Concomitant]
  34. IMDUR [Concomitant]
  35. CELEBREX [Concomitant]
  36. VERAPAMIL [Concomitant]
  37. WELLBUTRIN [Concomitant]
  38. ZANTAC [Concomitant]
  39. VIAGRA [Concomitant]
  40. MIRALAX [Concomitant]
  41. METOCLOPRAMIDE [Suspect]
     Indication: GASTROOESOPHAGEAL REFLUX DISEASE
     Dosage: 10 MG;BID;PO
     Route: 048
     Dates: start: 20080102, end: 20100319
  42. INSULIN [Concomitant]
  43. LIPITOR [Concomitant]
  44. OXYCODONE HCL [Concomitant]
  45. POTASSIUM CHLORIDE [Concomitant]
  46. DESYREL [Concomitant]
  47. NITROGLYCERIN [Concomitant]
  48. ASPIRIN [Concomitant]
  49. NEXIUM [Concomitant]
  50. CIALIS [Concomitant]
  51. TOLECTIN DS [Concomitant]
  52. MAGNESIUM HYDROXIDE TAB [Concomitant]
  53. HYDROCHLOROTHIAZIDE [Concomitant]
  54. HYDROCODONE BITARTRATE AND ACETAMINOPHEN [Concomitant]
  55. METRONIDAZOLE [Concomitant]
  56. RAMIPRIL [Concomitant]
  57. VITAMIN B-12 [Concomitant]
  58. NORVASC [Concomitant]
  59. ZEGERID [Concomitant]
  60. LEVSIN SL [Concomitant]

REACTIONS (72)
  - SYNCOPE [None]
  - NAUSEA [None]
  - TREMOR [None]
  - SLEEP APNOEA SYNDROME [None]
  - BRADYKINESIA [None]
  - SWELLING [None]
  - INTERVERTEBRAL DISC PROTRUSION [None]
  - AREFLEXIA [None]
  - SENSORY LOSS [None]
  - HYPOGLYCAEMIA [None]
  - UPPER LIMB FRACTURE [None]
  - ARTERIOSCLEROSIS CORONARY ARTERY [None]
  - DEPRESSION [None]
  - COGNITIVE DISORDER [None]
  - PALLOR [None]
  - LOSS OF CONSCIOUSNESS [None]
  - DRUG HYPERSENSITIVITY [None]
  - BLOOD GLUCOSE INCREASED [None]
  - EXTRAPYRAMIDAL DISORDER [None]
  - MYOCARDIAL ISCHAEMIA [None]
  - ABDOMINAL HERNIA [None]
  - JOINT EFFUSION [None]
  - HYPOTENSION [None]
  - COLONIC POLYP [None]
  - ARTHRALGIA [None]
  - VENTRICULAR ARRHYTHMIA [None]
  - HAEMORRHOIDS [None]
  - GASTROOESOPHAGEAL REFLUX DISEASE [None]
  - DISCOMFORT [None]
  - ASTHENIA [None]
  - STRESS [None]
  - ATROPHY [None]
  - DIZZINESS [None]
  - EAR PAIN [None]
  - FALL [None]
  - DIVERTICULUM INTESTINAL [None]
  - MUSCLE SPASMS [None]
  - DIABETIC COMPLICATION [None]
  - DYSKINESIA [None]
  - GASTRITIS [None]
  - LISTLESS [None]
  - HYPOACUSIS [None]
  - LIPOMA [None]
  - AORTIC ARTERIOSCLEROSIS [None]
  - SPINAL OSTEOARTHRITIS [None]
  - TARDIVE DYSKINESIA [None]
  - CHOREA [None]
  - NOCTURIA [None]
  - PAIN [None]
  - NEUROPATHY PERIPHERAL [None]
  - MUSCLE TWITCHING [None]
  - MUSCLE CONTRACTURE [None]
  - GAIT DISTURBANCE [None]
  - EMOTIONAL DISORDER [None]
  - PARKINSON'S DISEASE [None]
  - OESOPHAGITIS [None]
  - BACK PAIN [None]
  - ABASIA [None]
  - HEADACHE [None]
  - FATIGUE [None]
  - COGWHEEL RIGIDITY [None]
  - RASH GENERALISED [None]
  - FAMILY STRESS [None]
  - DYSPHAGIA [None]
  - RETINOPATHY [None]
  - CONSTIPATION [None]
  - MENTAL STATUS CHANGES [None]
  - DYSARTHRIA [None]
  - DIZZINESS POSTURAL [None]
  - ENCEPHALOPATHY [None]
  - ECONOMIC PROBLEM [None]
  - POSTURE ABNORMAL [None]
